FAERS Safety Report 5251329-9 (Version None)
Quarter: 2007Q1

REPORT INFORMATION
  Report Type: 
  Country: None (occurrence: None)
  Receive Date: 20061201
  Receipt Date: 20060801
  Transmission Date: 20070707
  Serious: No
  Sender: FDA-Public Use
  Company Number: 2006PV018601

PATIENT
  Age: 64 Year
  Sex: Female
  Weight: 106.1417 kg

DRUGS (6)
  1. BYETTA [Suspect]
     Indication: DIABETES MELLITUS NON-INSULIN-DEPENDENT
     Dosage: 5 MCG; BID; SC
     Route: 058
     Dates: start: 20060706
  2. GLUCOPHAGE [Concomitant]
  3. LISINOPRIL [Concomitant]
  4. NEPHROCAPS [Concomitant]
  5. MULTI-VITAMINS [Concomitant]
  6. ZOCOR [Concomitant]

REACTIONS (5)
  - ASTHENIA [None]
  - FATIGUE [None]
  - MYALGIA [None]
  - PRURITUS [None]
  - WEIGHT DECREASED [None]
